FAERS Safety Report 9386224 (Version 2)
Quarter: 2013Q3

REPORT INFORMATION
  Report Type: Report from Study
  Country: JP (occurrence: JP)
  Receive Date: 20130708
  Receipt Date: 20130814
  Transmission Date: 20140515
  Serious: Yes (Hospitalization)
  Sender: FDA-Public Use
  Company Number: JP-ROCHE-1245240

PATIENT
  Age: 45 Year
  Sex: Male

DRUGS (12)
  1. MIRCERA [Suspect]
     Indication: NEPHROGENIC ANAEMIA
     Route: 058
     Dates: start: 20121219, end: 20130227
  2. MIRCERA [Suspect]
     Indication: NEPHROGENIC ANAEMIA
     Route: 058
     Dates: start: 20130403, end: 20130508
  3. MIRCERA [Suspect]
     Indication: NEPHROGENIC ANAEMIA
     Route: 058
     Dates: start: 20130612
  4. ADALAT L [Concomitant]
     Route: 048
  5. ARTIST [Concomitant]
     Route: 048
  6. EPADEL [Concomitant]
     Route: 048
  7. ACECOL [Concomitant]
     Route: 048
  8. MICARDIS [Concomitant]
     Route: 048
  9. SEIBULE [Concomitant]
     Indication: DIABETIC NEPHROPATHY
     Route: 048
  10. ZETIA [Concomitant]
     Route: 048
  11. FEBURIC [Concomitant]
     Route: 048
  12. FERROUS FUMARATE [Concomitant]
     Route: 048
     Dates: start: 20130123, end: 20130129

REACTIONS (3)
  - Bronchitis [Recovered/Resolved]
  - Renal failure [Recovered/Resolved]
  - Infection [Unknown]
